FAERS Safety Report 15942359 (Version 1)
Quarter: 2019Q1

REPORT INFORMATION
  Report Type: Spontaneous
  Country: US (occurrence: US)
  Receive Date: 20190211
  Receipt Date: 20190211
  Transmission Date: 20190417
  Serious: No
  Sender: FDA-Public Use
  Company Number: None

PATIENT
  Age: 61 Year
  Sex: Female
  Weight: 89.1 kg

DRUGS (2)
  1. GAMMAGARD LIQUID [Suspect]
     Active Substance: HUMAN IMMUNOGLOBULIN G
     Indication: IMMUNODEFICIENCY COMMON VARIABLE
     Dosage: 25 G EVERY 10 DAYS; INTRAVENOUS
     Route: 042
     Dates: start: 20190115, end: 20190205
  2. GAMMAGARD LIQUID [Suspect]
     Active Substance: HUMAN IMMUNOGLOBULIN G
     Indication: IMMUNODEFICIENCY COMMON VARIABLE
     Dosage: 25 G EVERY 10 DAYS; INTRAVENOUS
     Route: 042
     Dates: start: 20190115, end: 20190205

REACTIONS (2)
  - Infusion related reaction [None]
  - Diarrhoea [None]

NARRATIVE: CASE EVENT DATE: 20190205
